FAERS Safety Report 22685050 (Version 7)
Quarter: 2024Q1

REPORT INFORMATION
  Report Type: Spontaneous
  Country: PT (occurrence: PT)
  Receive Date: 20230710
  Receipt Date: 20240110
  Transmission Date: 20240410
  Serious: Yes (Life-Threatening, Other)
  Sender: FDA-Public Use
  Company Number: PT-CELLTRION INC.-2023PT013582

PATIENT

DRUGS (5)
  1. INFLIXIMAB [Suspect]
     Active Substance: INFLIXIMAB
     Indication: Adenosine deaminase 2 deficiency
     Dosage: 5 MILLIGRAM/KILOGRAM EVERY 6 WEEKS, FREQUENCY: 6/6 WEEKS, 5 MG/KG (6/6 WEEKS)
     Route: 042
     Dates: start: 20220706, end: 20221010
  2. INFLIXIMAB [Suspect]
     Active Substance: INFLIXIMAB
     Dosage: 5 MG/KG (6/6 WEEKS)
     Route: 042
  3. INFLIXIMAB [Suspect]
     Active Substance: INFLIXIMAB
     Dosage: UNK
     Route: 065
     Dates: start: 20220822
  4. INFLIXIMAB [Suspect]
     Active Substance: INFLIXIMAB
     Dosage: UNK
     Route: 065
     Dates: start: 20221003
  5. ETANERCEPT [Suspect]
     Active Substance: ETANERCEPT
     Indication: Adenosine deaminase 2 deficiency
     Dosage: 50 MG, 1 WEEK
     Route: 058

REACTIONS (10)
  - Lymphoedema [Recovered/Resolved]
  - Myopathy [Recovered/Resolved]
  - Pericarditis [Recovered/Resolved]
  - Myopericarditis [Recovered/Resolved]
  - Cutaneous vasculitis [Recovered/Resolved]
  - Peripheral ischaemia [Recovered/Resolved]
  - Cardiac disorder [Recovered/Resolved]
  - Neutropenia [Unknown]
  - Off label use [Unknown]
  - Therapeutic product effect incomplete [Unknown]
